FAERS Safety Report 18117397 (Version 1)
Quarter: 2020Q3

REPORT INFORMATION
  Report Type: Spontaneous
  Country: JP (occurrence: JP)
  Receive Date: 20200806
  Receipt Date: 20200806
  Transmission Date: 20201103
  Serious: Yes (Death, Hospitalization)
  Sender: FDA-Public Use
  Company Number: JP-TEVA-2020-JP-1809898

PATIENT
  Age: 57 Year
  Sex: Male

DRUGS (3)
  1. IMMUNOGLOBULIN [Concomitant]
     Indication: PRODUCT USED FOR UNKNOWN INDICATION
     Route: 065
  2. TACROLIMUS. [Suspect]
     Active Substance: TACROLIMUS
     Indication: MYASTHENIA GRAVIS
     Dosage: RECEIVING FOR MORE THAN 5 YEARS
     Route: 065
  3. PREDNISOLONE. [Suspect]
     Active Substance: PREDNISOLONE
     Indication: MYASTHENIA GRAVIS
     Dosage: RECEIVING FOR MORE THAN 5 YEARS
     Route: 065

REACTIONS (5)
  - Mycobacterium abscessus infection [Fatal]
  - Spondylitis [Not Recovered/Not Resolved]
  - Abscess intestinal [Unknown]
  - Large intestine perforation [Recovering/Resolving]
  - Rectal perforation [Recovering/Resolving]
